FAERS Safety Report 15449414 (Version 1)
Quarter: 2018Q4

REPORT INFORMATION
  Report Type: Spontaneous
  Country: US (occurrence: US)
  Receive Date: 20181001
  Receipt Date: 20181001
  Transmission Date: 20190204
  Serious: Yes (Life-Threatening, Hospitalization)
  Sender: FDA-Public Use
  Company Number: US-SCIEGEN PHARMACEUTICALS INC-2018SCILIT00651

PATIENT

DRUGS (1)
  1. METFORMIN HYDROCHLORIDE TABLETS, USP [Suspect]
     Active Substance: METFORMIN HYDROCHLORIDE
     Indication: PRODUCT USED FOR UNKNOWN INDICATION
     Dosage: 10000 MG, 20 TABLETS AT ONCE
     Route: 048

REACTIONS (6)
  - Acute myocardial infarction [Recovering/Resolving]
  - Acute kidney injury [Recovered/Resolved]
  - Suicidal ideation [Unknown]
  - Intentional overdose [Unknown]
  - Toxicity to various agents [Unknown]
  - Lactic acidosis [Recovering/Resolving]
